FAERS Safety Report 12333383 (Version 1)
Quarter: 2016Q2

REPORT INFORMATION
  Report Type: Spontaneous
  Country: US (occurrence: US)
  Receive Date: 20160504
  Receipt Date: 20160504
  Transmission Date: 20160815
  Serious: No
  Sender: FDA-Public Use
  Company Number: US-ROCHE-1661348

PATIENT
  Sex: Female
  Weight: 56.75 kg

DRUGS (1)
  1. ESBRIET [Suspect]
     Active Substance: PIRFENIDONE
     Indication: IDIOPATHIC PULMONARY FIBROSIS
     Dosage: 3 CAPSULES THREE TIMES A DAY WITH FOOD
     Route: 048
     Dates: start: 20150324

REACTIONS (2)
  - Psoriasis [Unknown]
  - Rash [Unknown]
